FAERS Safety Report 8796821 (Version 1)
Quarter: 2012Q4

REPORT INFORMATION
  Report Type: Report from Study
  Country: FR (occurrence: FR)
  Receive Date: 20120917
  Receipt Date: 20120917
  Transmission Date: 20130627
  Serious: Yes (Death)
  Sender: FDA-Public Use
  Company Number: FR-ROCHE-1127029

PATIENT
  Age: 68 Year
  Sex: Male

DRUGS (3)
  1. AVASTIN [Suspect]
     Indication: PRODUCT USED FOR UNKNOWN INDICATION
     Route: 065
     Dates: start: 20110309
  2. AVASTIN [Suspect]
     Route: 065
     Dates: start: 20110824
  3. AVASTIN [Suspect]
     Route: 065
     Dates: start: 20111007

REACTIONS (2)
  - Colon cancer [Fatal]
  - Convulsion [Fatal]
